FAERS Safety Report 11223080 (Version 1)
Quarter: 2015Q2

REPORT INFORMATION
  Report Type: Spontaneous
  Country: US (occurrence: US)
  Receive Date: 20150626
  Receipt Date: 20150626
  Transmission Date: 20150821
  Serious: Yes (Hospitalization)
  Sender: FDA-Public Use
  Company Number: US-LUNDBECK-DKLU2000733

PATIENT
  Age: 35 Year
  Sex: Male

DRUGS (2)
  1. KETAMINE [Suspect]
     Active Substance: KETAMINE
     Indication: SEDATIVE THERAPY
     Route: 065
     Dates: start: 20150611
  2. ONFI [Suspect]
     Active Substance: CLOBAZAM
     Indication: LENNOX-GASTAUT SYNDROME
     Route: 065

REACTIONS (3)
  - Respiratory disorder [Unknown]
  - Blood pressure fluctuation [Unknown]
  - Seizure [Unknown]

NARRATIVE: CASE EVENT DATE: 20150611
